FAERS Safety Report 11532995 (Version 1)
Quarter: 2015Q3

REPORT INFORMATION
  Report Type: Spontaneous
  Country: US (occurrence: None)
  Receive Date: 20150921
  Receipt Date: 20150921
  Transmission Date: 20151125
  Serious: Yes (Other)
  Sender: FDA-Public Use
  Company Number: ADR-2015-01161

PATIENT
  Sex: Male

DRUGS (2)
  1. COMPOUNDED FENTANYL INTRATHECAL 2000 MCG/ML [Suspect]
     Active Substance: FENTANYL
     Dosage: 235 MCG/DAY
  2. COMPOUNDED BACLOFEN INTRATHECAL 400 MCG/ML [Suspect]
     Active Substance: BACLOFEN
     Indication: POST LAMINECTOMY SYNDROME
     Dosage: 47 MCG/DAY

REACTIONS (2)
  - Pain [None]
  - Hypoaesthesia [None]
